FAERS Safety Report 12988665 (Version 3)
Quarter: 2019Q1

REPORT INFORMATION
  Report Type: Spontaneous
  Country: BR (occurrence: BR)
  Receive Date: 20161130
  Receipt Date: 20190313
  Transmission Date: 20190417
  Serious: Yes (Other)
  Sender: FDA-Public Use
  Company Number: BR-AMGEN-BRASP2016168411

PATIENT
  Age: 54 Year
  Sex: Female

DRUGS (1)
  1. ENBREL [Suspect]
     Active Substance: ETANERCEPT
     Indication: PRODUCT USED FOR UNKNOWN INDICATION
     Dosage: UNK
     Route: 065
     Dates: start: 20141101, end: 2016

REACTIONS (14)
  - Lower limb fracture [Not Recovered/Not Resolved]
  - Bursitis [Unknown]
  - Finger deformity [Unknown]
  - Gait disturbance [Unknown]
  - Swelling [Not Recovered/Not Resolved]
  - Hypertension [Unknown]
  - Pain [Not Recovered/Not Resolved]
  - Osteoarthritis [Unknown]
  - Hand fracture [Not Recovered/Not Resolved]
  - Intervertebral disc protrusion [Not Recovered/Not Resolved]
  - Joint contracture [Unknown]
  - Peripheral swelling [Unknown]
  - Osteoporosis [Unknown]
  - Arthritis [Unknown]
